FAERS Safety Report 23131389 (Version 2)
Quarter: 2023Q4

REPORT INFORMATION
  Report Type: Spontaneous
  Country: US (occurrence: US)
  Receive Date: 20231031
  Receipt Date: 20231113
  Transmission Date: 20240109
  Serious: Yes (Hospitalization)
  Sender: FDA-Public Use
  Company Number: US-TEVA-2023-US-2940196

PATIENT
  Age: 85 Year
  Sex: Male

DRUGS (2)
  1. DILTIAZEM [Suspect]
     Active Substance: DILTIAZEM
     Indication: Atrial fibrillation
     Dosage: STARTED ON DILTIAZEM DRIP
     Route: 050
  2. DILTIAZEM [Suspect]
     Active Substance: DILTIAZEM
     Dosage: DURING DISCHARGE FROM INITIAL PRESENTATION
     Route: 048

REACTIONS (1)
  - Catatonia [Recovered/Resolved]
